FAERS Safety Report 16652402 (Version 1)
Quarter: 2019Q3

REPORT INFORMATION
  Report Type: Spontaneous
  Country: US (occurrence: US)
  Receive Date: 20190731
  Receipt Date: 20190731
  Transmission Date: 20191004
  Serious: Yes (Hospitalization)
  Sender: FDA-Public Use
  Company Number: None

PATIENT
  Age: 67 Year
  Sex: Female

DRUGS (20)
  1. ENOXAPARIN [Concomitant]
     Active Substance: ENOXAPARIN
  2. DAPSONE. [Concomitant]
     Active Substance: DAPSONE
  3. FAMOTIDINE. [Concomitant]
     Active Substance: FAMOTIDINE
  4. VORICONAZOLE TAB [Concomitant]
  5. BUDESONIDE. [Concomitant]
     Active Substance: BUDESONIDE
  6. ACYCLOVIR. [Concomitant]
     Active Substance: ACYCLOVIR
  7. BECLOMETHASO POWDR [Concomitant]
  8. ATOVAQUONE. [Concomitant]
     Active Substance: ATOVAQUONE
  9. PROMACTA [Suspect]
     Active Substance: ELTROMBOPAG OLAMINE
     Indication: PANCYTOPENIA
     Route: 048
     Dates: start: 20180911
  10. TACROLIMUS. [Concomitant]
     Active Substance: TACROLIMUS
  11. TRIAMCINOLON CRE [Concomitant]
  12. VITAMIN B12 [Concomitant]
     Active Substance: CYANOCOBALAMIN
  13. PANTOPRAZOLE [Concomitant]
     Active Substance: PANTOPRAZOLE
  14. CALCIUM/D [Concomitant]
  15. DRONABINOL. [Concomitant]
     Active Substance: DRONABINOL
  16. MIRTAZAPINE. [Concomitant]
     Active Substance: MIRTAZAPINE
  17. VITAMIN D3 [Concomitant]
     Active Substance: CHOLECALCIFEROL
  18. CARVEDILOL. [Concomitant]
     Active Substance: CARVEDILOL
  19. HYDROCOR AC SUP [Concomitant]
  20. AMLODIPINE [Concomitant]
     Active Substance: AMLODIPINE BESYLATE

REACTIONS (3)
  - Rectal haemorrhage [None]
  - Therapy cessation [None]
  - Hospitalisation [None]

NARRATIVE: CASE EVENT DATE: 20190630
